FAERS Safety Report 21882328 (Version 2)
Quarter: 2023Q2

REPORT INFORMATION
  Report Type: Spontaneous
  Country: JP (occurrence: JP)
  Receive Date: 20230119
  Receipt Date: 20230420
  Transmission Date: 20230722
  Serious: No
  Sender: FDA-Public Use
  Company Number: JP-BRISTOL-MYERS SQUIBB COMPANY-2023-006664

PATIENT

DRUGS (3)
  1. ORENCIA [Suspect]
     Active Substance: ABATACEPT
     Indication: Rheumatoid arthritis
     Route: 058
  2. ETANERCEPT [Suspect]
     Active Substance: ETANERCEPT
     Indication: Rheumatoid arthritis
  3. TOCILIZUMAB [Suspect]
     Active Substance: TOCILIZUMAB
     Indication: Rheumatoid arthritis

REACTIONS (1)
  - Drug ineffective [Unknown]
